FAERS Safety Report 4894310-1 (Version None)
Quarter: 2006Q1

REPORT INFORMATION
  Report Type: 
  Country: None (occurrence: None)
  Receive Date: 20060127
  Receipt Date: 20051214
  Transmission Date: 20060701
  Serious: Yes (Other)
  Sender: FDA-Public Use
  Company Number: PHBS2005JP18542

PATIENT
  Sex: Female

DRUGS (4)
  1. GLEEVEC [Suspect]
     Indication: GASTROINTESTINAL STROMAL TUMOUR
     Route: 048
  2. GLEEVEC [Suspect]
     Dosage: 100 MG/D
     Route: 048
     Dates: start: 20051101
  3. GLEEVEC [Suspect]
     Dosage: 400 MG/D
     Route: 048
     Dates: end: 20051201
  4. DUROTEP JANSSEN [Concomitant]

REACTIONS (5)
  - ANAEMIA [None]
  - DIFFICULTY IN WALKING [None]
  - GRIP STRENGTH DECREASED [None]
  - MUSCULAR WEAKNESS [None]
  - NAUSEA [None]
